FAERS Safety Report 9168017 (Version 1)
Quarter: 2013Q1

REPORT INFORMATION
  Report Type: Spontaneous
  Country: IT (occurrence: IT)
  Receive Date: 20130318
  Receipt Date: 20130318
  Transmission Date: 20140127
  Serious: Yes (Other)
  Sender: FDA-Public Use
  Company Number: IT-TEVA-391967ISR

PATIENT
  Age: 69 Year
  Sex: Male

DRUGS (3)
  1. FLUORORUCILE [Suspect]
     Indication: COLON CANCER METASTATIC
     Dosage: 1GR/20ML
     Route: 042
     Dates: start: 20130201, end: 20130226
  2. OXALIPLATINO [Suspect]
     Indication: COLON CANCER METASTATIC
     Dosage: 163MG
     Route: 042
     Dates: start: 20130201, end: 20130226
  3. AVASTIN [Suspect]
     Indication: COLON CANCER METASTATIC
     Dosage: 360MG
     Route: 042
     Dates: start: 20130201, end: 20130226

REACTIONS (3)
  - Mucosal inflammation [Not Recovered/Not Resolved]
  - Neutropenia [Not Recovered/Not Resolved]
  - Pyrexia [Not Recovered/Not Resolved]
